FAERS Safety Report 8606208-3 (Version None)
Quarter: 2012Q3

REPORT INFORMATION
  Report Type: 
  Country: None (occurrence: None)
  Receive Date: 20120820
  Receipt Date: 20120810
  Transmission Date: 20120928
  Serious: Yes (Hospitalization, Disabling)
  Sender: FDA-Public Use
  Company Number: US-ACTELION-A-NJ2012-68511

PATIENT
  Age: 22 Month
  Sex: Male

DRUGS (2)
  1. TRACLEER [Suspect]
     Dosage: 14 MG, BID
     Route: 048
     Dates: start: 20120621
  2. TRACLEER [Suspect]
     Indication: PULMONARY ARTERIAL HYPERTENSION
     Dosage: 15.6 MG, BID
     Route: 048
     Dates: start: 20110601, end: 20120620

REACTIONS (3)
  - CARDIAC ARREST [None]
  - PNEUMONIA [None]
  - HYPOXIC-ISCHAEMIC ENCEPHALOPATHY [None]
